FAERS Safety Report 8599926-7 (Version None)
Quarter: 2012Q3

REPORT INFORMATION
  Report Type: 
  Country: None (occurrence: None)
  Receive Date: 20120816
  Receipt Date: 20120209
  Transmission Date: 20120928
  Serious: No
  Sender: FDA-Public Use
  Company Number: US-AMGEN-USASP2011034541

PATIENT
  Sex: Female
  Weight: 51.8 kg

DRUGS (3)
  1. NPLATE [Suspect]
     Indication: IDIOPATHIC THROMBOCYTOPENIC PURPURA
     Dosage: 0.97 MUG/KG, UNK
     Dates: start: 20100205, end: 20110307
  2. CORTICOSTEROIDS [Concomitant]
  3. RITUXIMAB [Concomitant]

REACTIONS (1)
  - UNDERDOSE [None]
